FAERS Safety Report 6431660-1 (Version None)
Quarter: 2009Q4

REPORT INFORMATION
  Report Type: 
  Country: None (occurrence: None)
  Receive Date: 20091103
  Receipt Date: 20091020
  Transmission Date: 20100525
  Serious: Yes (Other)
  Sender: FDA-Public Use
  Company Number: B0600332A

PATIENT
  Sex: 0

DRUGS (2)
  1. TOPOTECAN HYDROCHLORIDE [Suspect]
     Indication: METASTASES TO MENINGES
  2. ETOPOSIDE [Suspect]
     Indication: METASTASES TO MENINGES

REACTIONS (1)
  - DEAFNESS [None]
